FAERS Safety Report 19141131 (Version 2)
Quarter: 2021Q2

REPORT INFORMATION
  Report Type: Spontaneous
  Country: IN (occurrence: IN)
  Receive Date: 20210415
  Receipt Date: 20210426
  Transmission Date: 20210717
  Serious: Yes (Other)
  Sender: FDA-Public Use
  Company Number: IN-PFIZER INC-2021403508

PATIENT
  Age: 67 Year
  Sex: Female

DRUGS (4)
  1. SHELCAL [CALCIUM CARBONATE;COLECALCIFEROL] [Concomitant]
     Dosage: 1000 MG
  2. ZOLDONAT [Concomitant]
     Dosage: 4 MG, MONTHLY (IN 100ML NS OVER 20MIN)
  3. PALBACE [Suspect]
     Active Substance: PALBOCICLIB
     Indication: BREAST CANCER METASTATIC
     Dosage: 125 MG, CYCLIC (OD X 21 D? 1 WK GAP)
     Route: 048
     Dates: start: 20200808
  4. LETROZOLE. [Concomitant]
     Active Substance: LETROZOLE
     Dosage: 2.5 MG, 1X/DAY X 28D

REACTIONS (3)
  - Blood pressure abnormal [Unknown]
  - Diabetes mellitus [Unknown]
  - SARS-CoV-2 test positive [Unknown]
